FAERS Safety Report 9243222 (Version 1)
Quarter: 2013Q2

REPORT INFORMATION
  Report Type: Spontaneous
  Country: GB (occurrence: GB)
  Receive Date: 20130419
  Receipt Date: 20130419
  Transmission Date: 20140414
  Serious: Yes (Hospitalization)
  Sender: FDA-Public Use
  Company Number: CHNY2013GB000996

PATIENT
  Age: 64 Year
  Sex: Male

DRUGS (10)
  1. NICOTINE [Suspect]
     Indication: SMOKING CESSATION THERAPY
     Dosage: 21 MG, UNK
     Route: 062
     Dates: start: 20130301, end: 20130309
  2. BISOPROLOL [Concomitant]
     Indication: HYPERTENSION
     Dosage: 7.5 MG, UNK
     Route: 048
  3. LISINOPRIL [Concomitant]
     Indication: HYPERTENSION
     Dosage: 10 MG, UNK
     Route: 048
  4. SIMVASTATIN [Concomitant]
     Dosage: 40 MG, UNK
     Route: 048
  5. ASPIRIN [Concomitant]
     Dosage: 75 MG, UNK
     Route: 048
  6. CLOPIDOGREL [Concomitant]
     Dosage: 75 MG, UNK
     Route: 048
  7. ISOSORBIDE MONONITRATE [Concomitant]
     Dosage: 30 MG, QD
     Route: 048
  8. ENOXAPARIN [Concomitant]
     Dosage: 40 MG, UNK
     Route: 058
  9. TRAMADOL [Concomitant]
     Dosage: 50 - 100 MG, QD
     Route: 060
  10. GTN [Concomitant]
     Dosage: 2 DF, 2 PUFFS, UNK
     Route: 060

REACTIONS (1)
  - Hallucination, visual [Recovered/Resolved]
